FAERS Safety Report 8611529-4 (Version None)
Quarter: 2012Q3

REPORT INFORMATION
  Report Type: 
  Country: None (occurrence: None)
  Receive Date: 20120809
  Receipt Date: 20120725
  Transmission Date: 20120928
  Serious: Yes (Death)
  Sender: FDA-Public Use
  Company Number: ALK_02777_2012

PATIENT
  Age: 26 Year
  Sex: Female

DRUGS (1)
  1. VIVITROL [Suspect]
     Indication: DRUG DEPENDENCE
     Dosage: 380 MG, INTRAMUSCULAR
     Route: 030
     Dates: start: 20120516

REACTIONS (2)
  - OVERDOSE [None]
  - DRUG ABUSE [None]
